FAERS Safety Report 18119930 (Version 3)
Quarter: 2024Q4

REPORT INFORMATION
  Report Type: Spontaneous
  Country: JP (occurrence: JP)
  Receive Date: 20200806
  Receipt Date: 20241209
  Transmission Date: 20250114
  Serious: Yes (Other)
  Sender: ALEXION PHARMACEUTICALS
  Company Number: 2020SE95605

PATIENT
  Age: 69 Year

DRUGS (4)
  1. IMFINZI [Suspect]
     Active Substance: DURVALUMAB
     Indication: Non-small cell lung cancer
     Dosage: 10 MILLIGRAM/KILOGRAM, Q2W
  2. IMFINZI [Suspect]
     Active Substance: DURVALUMAB
     Dosage: 10 MILLIGRAM/KILOGRAM, Q2W
     Route: 042
  3. IMFINZI [Suspect]
     Active Substance: DURVALUMAB
     Dosage: 10 MILLIGRAM/KILOGRAM, Q2W
  4. IMFINZI [Suspect]
     Active Substance: DURVALUMAB
     Dosage: 10 MILLIGRAM/KILOGRAM, Q2W
     Route: 042

REACTIONS (2)
  - Metastases to central nervous system [Unknown]
  - Pneumonia [Unknown]
